FAERS Safety Report 6259260-7 (Version None)
Quarter: 2009Q3

REPORT INFORMATION
  Report Type: 
  Country: None (occurrence: None)
  Receive Date: 20090707
  Receipt Date: 20090706
  Transmission Date: 20100115
  Serious: Yes (Hospitalization, Other)
  Sender: FDA-Public Use
  Company Number: US-ABBOTT-09P-163-0582653-00

PATIENT
  Sex: Female
  Weight: 98.518 kg

DRUGS (2)
  1. NIASPAN [Suspect]
     Indication: HIGH DENSITY LIPOPROTEIN INCREASED
     Dosage: 500MG DAILY
     Dates: start: 20090601, end: 20090626
  2. ASPIRIN [Suspect]
     Indication: PROPHYLAXIS
     Dates: start: 20090601, end: 20090601

REACTIONS (4)
  - ABDOMINAL PAIN [None]
  - GASTRITIS EROSIVE [None]
  - HAEMATOCHEZIA [None]
  - MENORRHAGIA [None]
